FAERS Safety Report 5025906-4 (Version None)
Quarter: 2006Q2

REPORT INFORMATION
  Report Type: 
  Country: None (occurrence: None)
  Receive Date: 20060612
  Receipt Date: 20060612
  Transmission Date: 20061013
  Serious: No
  Sender: FDA-Public Use
  Company Number: None

PATIENT
  Age: 28 Year
  Sex: Male

DRUGS (3)
  1. CLINDAMYCIN [Suspect]
     Dates: start: 20050304, end: 20050304
  2. VICODIN [Concomitant]
  3. PROPOFOL [Concomitant]

REACTIONS (11)
  - ABDOMINAL PAIN [None]
  - CHILLS [None]
  - CHROMATURIA [None]
  - FATIGUE [None]
  - HEADACHE [None]
  - LIVER FUNCTION TEST ABNORMAL [None]
  - NAUSEA [None]
  - OCULAR ICTERUS [None]
  - PAIN [None]
  - PRURITUS [None]
  - PYREXIA [None]
